FAERS Safety Report 15225777 (Version 1)
Quarter: 2018Q3

REPORT INFORMATION
  Report Type: Spontaneous
  Country: US (occurrence: US)
  Receive Date: 20180801
  Receipt Date: 20180801
  Transmission Date: 20181010
  Serious: No
  Sender: FDA-Public Use
  Company Number: US-PFIZER INC-2018306137

PATIENT
  Age: 53 Year
  Sex: Male
  Weight: 117 kg

DRUGS (6)
  1. BACTRIM [Interacting]
     Active Substance: SULFAMETHOXAZOLE\TRIMETHOPRIM
     Indication: PROSTATE INFECTION
     Dosage: UNK
     Dates: start: 201807
  2. BABY ASPIRIN [Concomitant]
     Active Substance: ASPIRIN
     Dosage: UNK
  3. CRESTOR [Concomitant]
     Active Substance: ROSUVASTATIN CALCIUM
     Dosage: UNK
  4. SUTENT [Suspect]
     Active Substance: SUNITINIB MALATE
     Indication: RENAL CANCER
     Dosage: 50 MG, CYCLIC (2 WEEKS ON/1 WEEK OFF)
     Dates: start: 20180515, end: 2018
  5. COREG [Concomitant]
     Active Substance: CARVEDILOL
     Dosage: UNK
  6. AMLODIPINE [Concomitant]
     Active Substance: AMLODIPINE BESYLATE
     Dosage: UNK

REACTIONS (6)
  - Malaise [Unknown]
  - Feeling abnormal [Unknown]
  - Asthenia [Unknown]
  - Eating disorder [Unknown]
  - Drug interaction [Unknown]
  - Nausea [Unknown]
